FAERS Safety Report 21369804 (Version 1)
Quarter: 2022Q3

REPORT INFORMATION
  Report Type: Spontaneous
  Country: DE (occurrence: DE)
  Receive Date: 20220923
  Receipt Date: 20220923
  Transmission Date: 20221026
  Serious: Yes (Hospitalization, Other)
  Sender: FDA-Public Use
  Company Number: None

PATIENT
  Age: 69 Year
  Sex: Male
  Weight: 80 kg

DRUGS (10)
  1. EPLERENONE [Suspect]
     Active Substance: EPLERENONE
     Dosage: 25 MG, 0.5-0-0-0
  2. BISOPROLOL [Suspect]
     Active Substance: BISOPROLOL
     Dosage: 1.25 MG, 1-0-1-0
  3. RAMIPRIL [Suspect]
     Active Substance: RAMIPRIL
     Dosage: 2.5 MG, 0.5-0-0.5-0
  4. TORSEMIDE [Suspect]
     Active Substance: TORSEMIDE
     Dosage: 10 MG, 1-0-0-0
  5. RIVAROXABAN [Concomitant]
     Active Substance: RIVAROXABAN
     Dosage: 15 MG, 1-0-0-0
  6. ASPIRIN [Concomitant]
     Active Substance: ASPIRIN
     Dosage: 100 MG, 0-1-0-0
  7. PRAVASTATIN [Concomitant]
     Active Substance: PRAVASTATIN
     Dosage: 40 MG, 0-0-0-1
  8. PANTOPRAZOLE [Concomitant]
     Active Substance: PANTOPRAZOLE
     Dosage: 40 MG, 0-0-1-0
  9. MELPERONE [Concomitant]
     Active Substance: MELPERONE
     Dosage: 25 MG, 0-0-0-1
  10. AMIODARONE [Concomitant]
     Active Substance: AMIODARONE
     Dosage: 200 MG, 1-0-0-0

REACTIONS (10)
  - Acute respiratory failure [Unknown]
  - Systemic infection [Unknown]
  - Renal impairment [Unknown]
  - Dehydration [Unknown]
  - Hypotension [Unknown]
  - Electrolyte imbalance [Unknown]
  - General physical health deterioration [Unknown]
  - Dyspnoea [Unknown]
  - Pulse absent [Unknown]
  - Fall [Unknown]
